FAERS Safety Report 6288697-5 (Version None)
Quarter: 2009Q3

REPORT INFORMATION
  Report Type: 
  Country: None (occurrence: None)
  Receive Date: 20090729
  Receipt Date: 20090727
  Transmission Date: 20100115
  Serious: Yes (Hospitalization, Other)
  Sender: FDA-Public Use
  Company Number: US-BRISTOL-MYERS SQUIBB COMPANY-11669785

PATIENT
  Age: 33 Year
  Sex: Female

DRUGS (6)
  1. ZERIT [Suspect]
     Indication: HIV INFECTION
     Dates: start: 20010605, end: 20010723
  2. CEFAMOX TABS 1 G [Suspect]
     Indication: URINARY TRACT INFECTION
     Route: 048
     Dates: start: 20010720, end: 20010723
  3. VIRAMUNE [Suspect]
     Indication: HIV INFECTION
     Route: 048
     Dates: start: 20010628, end: 20010723
  4. EPIVIR [Suspect]
     Indication: HIV INFECTION
     Dates: start: 20010605, end: 20010723
  5. ZINACEF [Suspect]
     Indication: URINARY TRACT INFECTION
     Route: 051
     Dates: start: 20010716, end: 20010720
  6. NELFINAVIR [Concomitant]
     Indication: HIV INFECTION
     Dates: start: 20010605, end: 20010628

REACTIONS (3)
  - LIVER DISORDER [None]
  - PREGNANCY [None]
  - PREMATURE LABOUR [None]
